FAERS Safety Report 4896254-8 (Version None)
Quarter: 2006Q1

REPORT INFORMATION
  Report Type: 
  Country: None (occurrence: None)
  Receive Date: 20060126
  Receipt Date: 20060110
  Transmission Date: 20060701
  Serious: Yes (Other)
  Sender: FDA-Public Use
  Company Number: US016666

PATIENT
  Age: 44 Year
  Sex: Female

DRUGS (1)
  1. GABITRIL [Suspect]
     Indication: MIGRAINE PROPHYLAXIS
     Dosage: 48 MG QD ORAL
     Route: 048

REACTIONS (3)
  - COMPLEX PARTIAL SEIZURES [None]
  - CONFUSIONAL STATE [None]
  - STEREOTYPY [None]
